FAERS Safety Report 21722665 (Version 3)
Quarter: 2023Q1

REPORT INFORMATION
  Report Type: Spontaneous
  Country: US (occurrence: US)
  Receive Date: 20221213
  Receipt Date: 20230124
  Transmission Date: 20230418
  Serious: Yes (Death, Hospitalization, Other)
  Sender: FDA-Public Use
  Company Number: US-PHARMAAND-2022PHR00266

PATIENT
  Sex: Female
  Weight: 78.9 kg

DRUGS (57)
  1. PEGASYS [Suspect]
     Active Substance: PEGINTERFERON ALFA-2A
     Indication: Cutaneous T-cell lymphoma
     Dosage: 180 ?G EVERY 10 DAYS
     Route: 058
     Dates: end: 20221006
  2. PEGASYS [Suspect]
     Active Substance: PEGINTERFERON ALFA-2A
     Indication: Cutaneous T-cell lymphoma
  3. PROVENTIL HFA [Concomitant]
     Active Substance: ALBUTEROL SULFATE
     Dosage: 2 DOSAGE UNITS, AS NEEDED
  4. ELIQUIS [Concomitant]
     Active Substance: APIXABAN
     Dosage: 5 MG, 2X/DAY
     Route: 048
  5. VITAMIN C [Concomitant]
     Active Substance: ASCORBIC ACID
     Dosage: 1000 MG, 1X/DAY AT BEDTIME
     Route: 048
  6. ASPIRIN [Concomitant]
     Active Substance: ASPIRIN
     Dosage: 81 MG, 1X/DAY
     Route: 048
  7. LIPITOR [Concomitant]
     Active Substance: ATORVASTATIN CALCIUM
     Dosage: 80 MG, 1X/DAY
     Route: 048
  8. TARGRETIN [Concomitant]
     Active Substance: BEXAROTENE
     Dosage: 300 MG, 1X/DAY
     Route: 048
  9. HIBICLENS [Concomitant]
     Active Substance: CHLORHEXIDINE GLUCONATE
     Dosage: UNK, AS NEEDED
     Route: 061
  10. CINNAMON\HERBALS [Concomitant]
     Active Substance: CINNAMON\HERBALS
     Dosage: 1000 MG, 2X/DAY
     Route: 048
  11. TEMOVATE [Concomitant]
     Active Substance: CLOBETASOL PROPIONATE
     Dosage: UNK, 2X/DAY
     Route: 061
  12. CATAPRES [Concomitant]
     Active Substance: CLONIDINE HYDROCHLORIDE
     Dosage: 0.2 MG, AS NEEDED
     Route: 048
  13. CARDIZEM CD [Concomitant]
     Active Substance: DILTIAZEM HYDROCHLORIDE
     Dosage: 180 MG, 1X/DAY
  14. BENADRYL [Concomitant]
     Active Substance: DIPHENHYDRAMINE HYDROCHLORIDE
     Dosage: 25 MG, AS NEEDED
     Route: 048
  15. PEPCID [Concomitant]
     Active Substance: FAMOTIDINE
     Dosage: 20 MG, 1X/DAY NIGHTLY
     Route: 048
  16. FERROUS SULFATE [Concomitant]
     Active Substance: FERROUS SULFATE
     Dosage: 325 MG, 1X/DAY WITH BREAKFAST
     Route: 048
  17. LIDEX [Concomitant]
     Active Substance: FLUOCINONIDE
     Dosage: UNK, 2X/DAY
     Route: 061
  18. LASIX [Concomitant]
     Active Substance: FUROSEMIDE
     Dosage: 20 MG, NIGHTLY AS NEEDED
     Route: 048
  19. GABAPENTIN [Concomitant]
     Active Substance: GABAPENTIN
     Dosage: 900 MG, 3X/DAY
     Route: 048
  20. DIABETA [Concomitant]
     Active Substance: GLYBURIDE
     Dosage: 2.5 MG, 1X/DAY WITH DINNER
     Route: 048
  21. ATARAX [Concomitant]
     Active Substance: HYDROXYZINE HYDROCHLORIDE
     Dosage: 25 MG, AS NEEDED EVERY 8 HOURS
  22. VASCEPA [Concomitant]
     Active Substance: ICOSAPENT ETHYL
     Dosage: 2 CAPSULES, 2X/DAY
     Route: 048
  23. ASCORBIC ACID\IRON [Concomitant]
     Active Substance: ASCORBIC ACID\IRON
     Dosage: 1 TABLETS, 1X/DAY AFTER DINNER
     Route: 048
  24. CULTURELLE [Concomitant]
     Active Substance: LACTOBACILLUS RHAMNOSUS
     Dosage: 1 CAPSULES, 1X/DAY AT BEDTIME
     Route: 048
  25. SYNTHROID [Concomitant]
     Active Substance: LEVOTHYROXINE SODIUM
     Dosage: 75 ?G, 5X/WEEK (MONDAY- FRIDAY) EVERY MORNING BEFORE BREAKFAST
     Route: 048
  26. SYNTHROID [Concomitant]
     Active Substance: LEVOTHYROXINE SODIUM
     Dosage: 112.5 ?G, 5X/WEEK (SATURDAY-SUNDAY) EVERY MORNING BEFORE BREAKFAST
     Route: 048
  27. EMLA [Concomitant]
     Active Substance: LIDOCAINE\PRILOCAINE
     Dosage: UNK, AS NEEDED DAILY
     Route: 061
  28. COZAAR [Concomitant]
     Active Substance: LOSARTAN POTASSIUM
     Dosage: 50 MG, 1X/DAY AT DINNER
     Route: 048
  29. MAGNESIUM [Concomitant]
     Active Substance: MAGNESIUM
     Dosage: 30 MG, 2X/DAY
     Route: 048
  30. ANTIVERT [Concomitant]
     Active Substance: MECLIZINE HYDROCHLORIDE
     Dosage: 25 MG, 2X/DAY
     Route: 048
  31. GLUCOPHAGE [Concomitant]
     Active Substance: METFORMIN HYDROCHLORIDE
     Dosage: 500 MG, 2X/DAY WITH MEALS
     Route: 048
  32. LOPRESSOR [Concomitant]
     Active Substance: METOPROLOL TARTRATE
     Dosage: 50 MG, 2X/DAY
     Route: 048
  33. MYRBETRIQ [Concomitant]
     Active Substance: MIRABEGRON
     Dosage: 50 MG, 1X/DAY
     Route: 048
  34. ASMANEX [Concomitant]
     Active Substance: MOMETASONE FUROATE
     Dosage: 1 DOSAGE FORM, 1X/DAY
  35. SINGULAIR [Concomitant]
     Active Substance: MONTELUKAST SODIUM
     Dosage: 10 MG, 1X/DAY AT BEDTIME
     Route: 048
  36. MULTAQ [Concomitant]
     Active Substance: DRONEDARONE
     Dosage: 400 MG, 2X/DAY
     Route: 048
  37. MYCOSTATIN [Concomitant]
     Active Substance: NYSTATIN
     Dosage: 5 ML, 4X/DAY
     Route: 048
  38. BENICAR [Concomitant]
     Active Substance: OLMESARTAN MEDOXOMIL
     Dosage: 40 MG, 1X/DAY EVERY MORNING
     Route: 048
  39. LOVAZA [Concomitant]
     Active Substance: OMEGA-3-ACID ETHYL ESTERS
     Dosage: 2 G, 2X/DAY
     Route: 048
  40. PRILOSEC [Concomitant]
     Active Substance: OMEPRAZOLE MAGNESIUM
     Dosage: 40 MG, 2X/DAY
     Route: 048
  41. ZOFRAN [Concomitant]
     Active Substance: ONDANSETRON HYDROCHLORIDE
     Dosage: 8 MG, AS NEEDED EVERY 8 HOURS
  42. SEREVENT DISKUS [Concomitant]
     Active Substance: SALMETEROL XINAFOATE
     Dosage: 50 ?G, 2X/DAY
  43. BETAPACE [Concomitant]
     Active Substance: SOTALOL HYDROCHLORIDE
     Dosage: 80 MG, 2X/DAY
     Route: 048
  44. BACTRIM DS [Concomitant]
     Active Substance: SULFAMETHOXAZOLE\TRIMETHOPRIM
     Dosage: 1 TABLETS, 3X/WEEK (MONDAY, WEDNESDAY, FRIDAY)
     Route: 048
  45. THIAMINE [Concomitant]
     Active Substance: THIAMINE
     Dosage: 100 MG, 1X/DAY
     Route: 048
  46. KENALOG [Concomitant]
     Active Substance: TRIAMCINOLONE ACETONIDE
     Dosage: UNK, 2X/DAY
     Route: 061
  47. FIBERCOM [Concomitant]
     Dosage: 1 TABLETS, 2X/DAY
  48. NEUROBOOST IQ [Concomitant]
     Dosage: 1 CAPSULES, 1X/DAY AT BREAKFAST
  49. SLEEP CALM [Concomitant]
     Dosage: 2 UNK, 1X/DAY 30 MINUTES BEFORE BED
  50. VALTREX [Concomitant]
     Active Substance: VALACYCLOVIR HYDROCHLORIDE
     Dosage: 500 MG, 2X/DAY
     Route: 048
  51. VITAMIN B6-ME-THFOLATE-ME-B12-ALA [Concomitant]
     Dosage: 1 CAPSULES
     Route: 048
  52. NUFOLA [(6S)-5-METHYLTETRAHYDROFOLATE GLUCOSAMINE;MECOBALAMIN;PYRIDOXA [Concomitant]
     Dosage: 1 CAPSULES, 2X/DAY
     Route: 048
  53. VITAMIN D3- VITAMIN K2 [Concomitant]
     Dosage: 1 TABLETS, 1X/DAY
     Route: 048
  54. .ALPHA.-TOCOPHEROL [Concomitant]
     Active Substance: .ALPHA.-TOCOPHEROL
     Dosage: 400 UNITED STATES PHARMACOPEIA UNIT, 1X/DAY
     Route: 048
  55. SONATA [Concomitant]
     Active Substance: ZALEPLON
     Dosage: 10 MG, 1X/DAY AT BEDTIME
     Route: 048
  56. ZINC GLUCONATE [Concomitant]
     Active Substance: ZINC GLUCONATE
     Dosage: 50 MG, 2X/DAY
     Route: 048
  57. AMBIEN CR [Concomitant]
     Active Substance: ZOLPIDEM TARTRATE
     Dosage: 10 MG, AS NEEDED
     Route: 048

REACTIONS (26)
  - Cardiac arrest [Fatal]
  - Obstructive airways disorder [Unknown]
  - Multiple organ dysfunction syndrome [Unknown]
  - Acute kidney injury [Unknown]
  - Drug ineffective for unapproved indication [Unknown]
  - Hypoalbuminaemia [Unknown]
  - Staphylococcal bacteraemia [Unknown]
  - Weight decreased [Unknown]
  - Pneumonia [Unknown]
  - Acute respiratory failure [Unknown]
  - Thrombocytopenia [Unknown]
  - Neutropenia [Recovering/Resolving]
  - Procalcitonin increased [Unknown]
  - Brain natriuretic peptide increased [Unknown]
  - Decreased appetite [Unknown]
  - Taste disorder [Unknown]
  - Paranasal sinus hypersecretion [Unknown]
  - Hypotension [Unknown]
  - Mental status changes [Unknown]
  - White blood cell count decreased [Unknown]
  - Haemoglobin decreased [Unknown]
  - Haematocrit decreased [Unknown]
  - Pleural effusion [Unknown]
  - Blood sodium decreased [Unknown]
  - Nausea [Unknown]
  - Vomiting [Unknown]

NARRATIVE: CASE EVENT DATE: 20220101
